FAERS Safety Report 11842968 (Version 5)
Quarter: 2016Q4

REPORT INFORMATION
  Report Type: Report from Study
  Country: DE (occurrence: US)
  Receive Date: 20151216
  Receipt Date: 20161018
  Transmission Date: 20170206
  Serious: Yes (Hospitalization, Other)
  Sender: FDA-Public Use
  Company Number: US-ACTELION-A-US2015-121667

PATIENT
  Age: 36 Year
  Sex: Female

DRUGS (8)
  1. TRACLEER [Suspect]
     Active Substance: BOSENTAN
     Dosage: UNK
     Route: 048
  2. VENTAVIS [Suspect]
     Active Substance: ILOPROST
     Indication: PULMONARY ARTERIAL HYPERTENSION
     Dosage: 5 MCG, 2-6 X DAILY
     Route: 055
     Dates: start: 20050606
  3. ADEMPAS [Suspect]
     Active Substance: RIOCIGUAT
     Indication: PULMONARY HYPERTENSION
     Dosage: 2.5 MG, TID
     Route: 048
     Dates: start: 20140220
  4. COUMADIN [Concomitant]
     Active Substance: WARFARIN SODIUM
  5. ADEMPAS [Suspect]
     Active Substance: RIOCIGUAT
     Dosage: 2.5 MG, TID
     Route: 048
  6. ROBITUSSIN DM [Concomitant]
     Active Substance: DEXTROMETHORPHAN HYDROBROMIDE\GUAIFENESIN
  7. TRACLEER [Suspect]
     Active Substance: BOSENTAN
     Indication: PULMONARY ARTERIAL HYPERTENSION
     Dosage: 125 MG, BID
     Route: 048
     Dates: start: 20020226
  8. SILDENAFIL. [Concomitant]
     Active Substance: SILDENAFIL

REACTIONS (15)
  - Pneumonia [Unknown]
  - Respiratory tract congestion [Unknown]
  - Dysstasia [Unknown]
  - Syncope [Unknown]
  - Fear [Unknown]
  - Nausea [Unknown]
  - Diarrhoea [Unknown]
  - Oropharyngeal pain [Unknown]
  - Head injury [Unknown]
  - Dizziness [Unknown]
  - Influenza [Unknown]
  - Vomiting [Unknown]
  - Nasopharyngitis [Unknown]
  - Productive cough [Unknown]
  - Ear infection [Recovered/Resolved]

NARRATIVE: CASE EVENT DATE: 20160708
